FAERS Safety Report 23216952 (Version 1)
Quarter: 2023Q4

REPORT INFORMATION
  Report Type: Spontaneous
  Country: CN (occurrence: CN)
  Receive Date: 20231122
  Receipt Date: 20231122
  Transmission Date: 20240109
  Serious: Yes (Other)
  Sender: FDA-Public Use
  Company Number: CN-MLMSERVICE-20231106-4642937-1

PATIENT
  Age: 59 Year
  Sex: Male

DRUGS (5)
  1. CARBOPLATIN [Suspect]
     Active Substance: CARBOPLATIN
     Indication: Non-small cell lung cancer stage IIIA
     Dosage: DAYS 1
     Dates: start: 20200929, end: 20201020
  2. GEMCITABINE [Suspect]
     Active Substance: GEMCITABINE
     Indication: Non-small cell lung cancer stage IIIA
     Dosage: DAYS 1 AND 8
     Dates: start: 20200929, end: 20201020
  3. PEMBROLIZUMAB [Suspect]
     Active Substance: PEMBROLIZUMAB
     Indication: Non-small cell lung cancer stage IIIA
     Dosage: DAYS 1
     Dates: start: 20200929, end: 20201020
  4. MOXIFLOXACIN [Concomitant]
     Active Substance: MOXIFLOXACIN
     Indication: Lower respiratory tract infection
     Dates: start: 20201107, end: 20201117
  5. ERTAPENEM [Concomitant]
     Active Substance: ERTAPENEM
     Indication: Lower respiratory tract infection
     Dates: start: 20201107, end: 20201117

REACTIONS (2)
  - Hypothyroidism [Recovered/Resolved]
  - Hyperthyroidism [Recovered/Resolved]

NARRATIVE: CASE EVENT DATE: 20200101
